FAERS Safety Report 17350557 (Version 5)
Quarter: 2020Q1

REPORT INFORMATION
  Report Type: Spontaneous
  Country: US (occurrence: US)
  Receive Date: 20200130
  Receipt Date: 20200325
  Transmission Date: 20200409
  Serious: Yes (Other)
  Sender: FDA-Public Use
  Company Number: US-PFIZER INC-2020041181

PATIENT
  Age: 39 Year
  Sex: Female
  Weight: 84 kg

DRUGS (16)
  1. EFFEXOR XR [Suspect]
     Active Substance: VENLAFAXINE HYDROCHLORIDE
     Indication: ANTIDEPRESSANT THERAPY
     Dosage: 150 MG, 2X/DAY
     Dates: start: 2006, end: 2013
  2. SUNDOWN FISH OIL [Concomitant]
     Dosage: 1200 MG, UNK
     Dates: start: 20200112
  3. METFORMIN HCL [Concomitant]
     Active Substance: METFORMIN HYDROCHLORIDE
     Dosage: 1000 MG, UNK
     Dates: start: 2018
  4. CERAMIN [Concomitant]
     Dosage: 4 G, UNK (1 SCOOP)
     Dates: start: 201910
  5. SIMVASTATIN. [Concomitant]
     Active Substance: SIMVASTATIN
     Dosage: 20 MG, UNK
     Dates: start: 2018
  6. EFFEXOR XR [Suspect]
     Active Substance: VENLAFAXINE HYDROCHLORIDE
     Indication: BIPOLAR I DISORDER
     Dosage: 150 MG, 2X/DAY
     Dates: start: 2013, end: 2015
  7. EFFEXOR XR [Suspect]
     Active Substance: VENLAFAXINE HYDROCHLORIDE
     Indication: LOSS OF PERSONAL INDEPENDENCE IN DAILY ACTIVITIES
  8. NATURE MADE MULTI FOR HER 50+ [Concomitant]
     Dosage: UNK
     Dates: start: 20200112
  9. LUNESTA [Concomitant]
     Active Substance: ESZOPICLONE
     Indication: SLEEP DISORDER
     Dosage: 3 MG, UNK
  10. EFFEXOR XR [Suspect]
     Active Substance: VENLAFAXINE HYDROCHLORIDE
     Indication: SLEEP DISORDER
     Dosage: 150 MG, 2X/DAY(SHE TAKES TWO; ONE IN THE MORNING AND EVENING)
     Dates: start: 201905
  11. NATURE MADE MULTI FOR HER 50+ [Concomitant]
     Dosage: UNK
  12. PIOGLITAZONE. [Concomitant]
     Active Substance: PIOGLITAZONE
     Dosage: 15 MG, UNK
     Dates: start: 2018
  13. NATURE MADE SUPER B COMPLEX [Concomitant]
     Dosage: UNK
     Dates: start: 2013
  14. METHYLFOLATE [Concomitant]
     Active Substance: LEVOMEFOLATE CALCIUM
     Dosage: 800 UG, UNK
     Dates: start: 201906
  15. KIRKLAND SIGNATURE VITAMIN B12 [Concomitant]
     Dosage: 5000 UG, UNK
     Dates: start: 201906
  16. FENOFIBRATE. [Concomitant]
     Active Substance: FENOFIBRATE
     Dosage: 145 MG, UNK
     Dates: start: 2018

REACTIONS (5)
  - Yawning [Recovered/Resolved]
  - Insomnia [Unknown]
  - Drug ineffective [Not Recovered/Not Resolved]
  - Drug dependence [Unknown]
  - Eyelid ptosis [Recovered/Resolved]

NARRATIVE: CASE EVENT DATE: 2006
